FAERS Safety Report 7404980-1 (Version None)
Quarter: 2011Q2

REPORT INFORMATION
  Report Type: 
  Country: None (occurrence: None)
  Receive Date: 20110411
  Receipt Date: 20110330
  Transmission Date: 20111010
  Serious: Yes (Other)
  Sender: FDA-Public Use
  Company Number: US-JNJFOC-20110100827

PATIENT
  Sex: Male
  Weight: 49.9 kg

DRUGS (4)
  1. CONCERTA [Suspect]
     Indication: ATTENTION DEFICIT/HYPERACTIVITY DISORDER
     Route: 048
  2. CONCERTA [Suspect]
     Route: 048
  3. CLONIDINE [Concomitant]
     Indication: ATTENTION DEFICIT/HYPERACTIVITY DISORDER
     Route: 048
  4. VITAMIN TAB [Concomitant]
     Route: 065

REACTIONS (4)
  - INSOMNIA [None]
  - ERYTHEMA [None]
  - DERMATITIS [None]
  - CARDIOVASCULAR DISORDER [None]
